FAERS Safety Report 19287311 (Version 2)
Quarter: 2022Q1

REPORT INFORMATION
  Report Type: Other
  Country: PL (occurrence: PL)
  Receive Date: 20210522
  Receipt Date: 20220201
  Transmission Date: 20220423
  Serious: Yes (Hospitalization, Other)
  Sender: FDA-Public Use
  Company Number: PL-MACLEODS PHARMA UK LTD-MAC2021031181

PATIENT

DRUGS (25)
  1. AMLODIPINE [Suspect]
     Active Substance: AMLODIPINE BESYLATE
     Indication: Cardiac failure
     Dosage: UNK; AMLODIPINE BESILATE 10/10 MG
     Route: 065
  2. PANTOPRAZOLE SODIUM [Suspect]
     Active Substance: PANTOPRAZOLE SODIUM
     Indication: Helicobacter gastritis
     Dosage: 40 MILLIGRAM, BID, (40 MGX2)
     Route: 065
  3. PANTOPRAZOLE SODIUM [Suspect]
     Active Substance: PANTOPRAZOLE SODIUM
     Indication: Helicobacter gastritis
     Dosage: 80 MILLIGRAM
     Route: 065
  4. PANTOPRAZOLE SODIUM [Suspect]
     Active Substance: PANTOPRAZOLE SODIUM
     Dosage: 80 MILLIGRAM; 40 MG, 2X/DAY
     Route: 065
  5. PANTOPRAZOLE SODIUM [Suspect]
     Active Substance: PANTOPRAZOLE SODIUM
     Dosage: 80 MILLIGRAM; 80 MG, 2X40MG
     Route: 065
  6. ROSUVASTATIN [Suspect]
     Active Substance: ROSUVASTATIN
     Indication: Hypertension
     Dosage: 40 MILLIGRAM
     Route: 065
  7. ROSUVASTATIN [Suspect]
     Active Substance: ROSUVASTATIN
     Indication: Carotid arteriosclerosis
     Dosage: 40 MILLIGRAM 40MG (40 MG)
     Route: 065
  8. ROSUVASTATIN [Suspect]
     Active Substance: ROSUVASTATIN
     Indication: Disease risk factor
  9. ROSUVASTATIN [Suspect]
     Active Substance: ROSUVASTATIN
     Indication: Carotid arteriosclerosis
  10. RAMIPRIL [Suspect]
     Active Substance: RAMIPRIL
     Indication: Cardiac failure
     Dosage: 10 MILLIGRAM
     Route: 065
  11. RAMIPRIL [Suspect]
     Active Substance: RAMIPRIL
     Indication: Coronary artery disease
  12. RAMIPRIL [Suspect]
     Active Substance: RAMIPRIL
     Indication: Coronary artery disease
  13. ASPIRIN [Suspect]
     Active Substance: ASPIRIN
     Indication: Hypertension
     Dosage: 75 MILLIGRAM
     Route: 065
  14. ASPIRIN [Suspect]
     Active Substance: ASPIRIN
     Indication: Carotid arteriosclerosis
     Dosage: UNK (ORAL SOLUTION)
     Route: 065
  15. ASPIRIN [Suspect]
     Active Substance: ASPIRIN
     Indication: Postoperative care
     Dosage: 75 MILLIGRAM
     Route: 065
  16. ASPIRIN [Suspect]
     Active Substance: ASPIRIN
     Indication: Coronary artery bypass
     Dosage: 75 MILLIGRAM
     Route: 065
  17. ASPIRIN [Suspect]
     Active Substance: ASPIRIN
     Indication: Disease risk factor
  18. BISOPROLOL [Suspect]
     Active Substance: BISOPROLOL
     Indication: Coronary artery disease
     Dosage: 7.5 MILLIGRAM
     Route: 065
  19. BISOPROLOL [Suspect]
     Active Substance: BISOPROLOL
     Indication: Cardiac failure
     Dosage: 7.5 MILLIGRAM
     Route: 065
  20. BISOPROLOL [Suspect]
     Active Substance: BISOPROLOL
     Dosage: 7.5 MILLIGRAM
     Route: 065
  21. ESOMEPRAZOLE [Suspect]
     Active Substance: ESOMEPRAZOLE
     Indication: Renal failure
     Dosage: 20 MILLIGRAM; ESOMEPRAZOLE MAGNESIUM GASTRO-RESISTANT TABLET
     Route: 065
  22. ESOMEPRAZOLE [Suspect]
     Active Substance: ESOMEPRAZOLE
     Indication: Antiplatelet therapy
     Dosage: 20 MILLIGRAM
     Route: 065
  23. AMLODIPINE\RAMIPRIL [Suspect]
     Active Substance: AMLODIPINE\RAMIPRIL
     Indication: Coronary artery disease
     Dosage: UNK
     Route: 065
  24. CLOPIDOGREL [Concomitant]
     Active Substance: CLOPIDOGREL BISULFATE
     Indication: Postoperative care
     Dosage: 75 MILLIGRAM
     Route: 065
  25. CLOPIDOGREL [Concomitant]
     Active Substance: CLOPIDOGREL BISULFATE
     Dosage: UNK
     Route: 065

REACTIONS (29)
  - Systolic dysfunction [Unknown]
  - Left ventricular hypertrophy [Unknown]
  - Tricuspid valve incompetence [Unknown]
  - Occult blood [Unknown]
  - Ventricular hypokinesia [Unknown]
  - Dyspnoea at rest [Unknown]
  - Diastolic dysfunction [Unknown]
  - Cardiac failure [Unknown]
  - Helicobacter gastritis [Unknown]
  - Mitral valve incompetence [Unknown]
  - Chronic kidney disease [Unknown]
  - Pericardial effusion [Unknown]
  - Hepatojugular reflux [Unknown]
  - Oedema peripheral [Unknown]
  - Aortic valve incompetence [Unknown]
  - Rales [Unknown]
  - Carotid arteriosclerosis [Unknown]
  - Anaemia macrocytic [Unknown]
  - Carotid artery stenosis [Unknown]
  - Palpitations [Unknown]
  - Hyperlipidaemia [Unknown]
  - Acute kidney injury [Unknown]
  - Angiopathy [Unknown]
  - Coronary artery disease [Unknown]
  - Electrocardiogram Q wave abnormal [Unknown]
  - Acute myocardial infarction [Unknown]
  - Ejection fraction decreased [Unknown]
  - Asthenia [Unknown]
  - Angiopathy [Unknown]

NARRATIVE: CASE EVENT DATE: 20190918
